FAERS Safety Report 4881764-X (Version None)
Quarter: 2006Q1

REPORT INFORMATION
  Report Type: 
  Country: None (occurrence: None)
  Receive Date: 20060116
  Receipt Date: 20060106
  Transmission Date: 20060701
  Serious: Yes (Hospitalization)
  Sender: FDA-Public Use
  Company Number: FR-ABBOTT-06P-056-0321437-00

PATIENT
  Age: 34 Year
  Sex: Male

DRUGS (11)
  1. DEPAKOTE [Suspect]
     Indication: BIPOLAR I DISORDER
     Route: 048
  2. DEPAKOTE [Suspect]
     Route: 048
     Dates: start: 20051107
  3. OLANZAPINE [Suspect]
     Indication: BIPOLAR I DISORDER
     Route: 048
  4. OLANZAPINE [Suspect]
     Route: 048
     Dates: start: 20051107
  5. LITHIUM CARBONATE [Suspect]
     Indication: BIPOLAR I DISORDER
     Route: 048
     Dates: end: 20051115
  6. LITHIUM CARBONATE [Suspect]
     Route: 048
     Dates: start: 20051117
  7. CYAMEMAZINE [Suspect]
     Indication: BIPOLAR I DISORDER
     Route: 048
     Dates: start: 20051109, end: 20051114
  8. CYAMEMAZINE [Suspect]
     Route: 048
     Dates: start: 20051114, end: 20051116
  9. CYAMEMAZINE [Suspect]
     Route: 048
     Dates: start: 20051116, end: 20051130
  10. CLONAZEPAM [Suspect]
     Indication: BIPOLAR I DISORDER
     Route: 048
     Dates: start: 20051109, end: 20051116
  11. CLONAZEPAM [Suspect]
     Route: 048
     Dates: start: 20051116, end: 20051130

REACTIONS (7)
  - AGITATION [None]
  - CONFUSIONAL STATE [None]
  - DISORIENTATION [None]
  - DRUG LEVEL INCREASED [None]
  - MANIA [None]
  - SEDATION [None]
  - VOMITING [None]
